FAERS Safety Report 10085269 (Version 1)
Quarter: 2014Q2

REPORT INFORMATION
  Report Type: Spontaneous
  Country: FR (occurrence: FR)
  Receive Date: 20140417
  Receipt Date: 20140417
  Transmission Date: 20141212
  Serious: Yes (Death, Hospitalization)
  Sender: FDA-Public Use
  Company Number: FR-B.I. PHARMACEUTICALS,INC./RIDGEFIELD-2014-BI-17019FF

PATIENT
  Age: 79 Year
  Sex: Male

DRUGS (5)
  1. PRADAXA [Suspect]
     Indication: PRODUCT USED FOR UNKNOWN INDICATION
     Dosage: 220 MG
     Route: 048
     Dates: start: 2012, end: 20140317
  2. SIMVASTATINE [Concomitant]
     Dosage: 20 MG
     Route: 048
     Dates: end: 20140317
  3. AERIUS [Concomitant]
     Dosage: 5 MG
     Route: 048
  4. SYMBICORT TURBUHALER [Concomitant]
     Route: 055
     Dates: end: 20140317
  5. SPIRIVA [Concomitant]
     Route: 055
     Dates: end: 20140317

REACTIONS (1)
  - Cerebral haematoma [Fatal]
